FAERS Safety Report 15344351 (Version 1)
Quarter: 2018Q3

REPORT INFORMATION
  Report Type: Spontaneous
  Country: US (occurrence: US)
  Receive Date: 20180903
  Receipt Date: 20180903
  Transmission Date: 20181010
  Serious: Yes (Other)
  Sender: FDA-Public Use
  Company Number: US-SA-2018SA133194

PATIENT
  Age: 51 Year
  Sex: Female
  Weight: 61.23 kg

DRUGS (6)
  1. NEOSAR [Concomitant]
     Active Substance: CYCLOPHOSPHAMIDE
     Indication: BREAST CANCER FEMALE
  2. TAXOTERE [Suspect]
     Active Substance: DOCETAXEL
     Indication: BREAST CANCER FEMALE
     Dosage: UNK UNK, Q3W
     Route: 042
     Dates: start: 20140109, end: 20140109
  3. CYTOXAN [Concomitant]
     Active Substance: CYCLOPHOSPHAMIDE
  4. ARIMIDEX [Concomitant]
     Active Substance: ANASTROZOLE
  5. TAMOXIFEN [Concomitant]
     Active Substance: TAMOXIFEN
  6. TAXOTERE [Suspect]
     Active Substance: DOCETAXEL
     Dosage: 134?135 MG, Q3W
     Route: 042
     Dates: start: 20140424, end: 20140424

REACTIONS (1)
  - Alopecia [Recovering/Resolving]

NARRATIVE: CASE EVENT DATE: 201401
